FAERS Safety Report 16357584 (Version 1)
Quarter: 2019Q2

REPORT INFORMATION
  Report Type: Spontaneous
  Country: PL (occurrence: PL)
  Receive Date: 20190527
  Receipt Date: 20190527
  Transmission Date: 20190711
  Serious: Yes (Hospitalization)
  Sender: FDA-Public Use
  Company Number: PL-ACCORD-026306

PATIENT
  Sex: Male

DRUGS (3)
  1. CISPLATINE ACCORD [Suspect]
     Active Substance: CISPLATIN
     Indication: LUNG CARCINOMA CELL TYPE UNSPECIFIED STAGE I
     Dosage: STRENGTH:100 MG?WAS TAKEN AT 1ST DAY OF CHEMOTHERAPY.
     Route: 042
     Dates: start: 20140911, end: 20140911
  2. NAVELBINE [Suspect]
     Active Substance: VINORELBINE TARTRATE
     Indication: LUNG CARCINOMA CELL TYPE UNSPECIFIED STAGE I
     Dosage: STRENGTH: 50 MG A 10, RECEIVED ON 1ST DAY OF CT. ALSO RECEIVED 8TH DAY OF CT ON 18-SEP-2014.
     Route: 042
     Dates: start: 20140911, end: 20140911
  3. TEVAGRASTIM [Suspect]
     Active Substance: FILGRASTIM
     Indication: MALIGNANT RESPIRATORY TRACT NEOPLASM
     Dosage: 48 M IU (20914)
     Route: 042

REACTIONS (2)
  - Granulocytopenia [Recovering/Resolving]
  - Leukopenia [Recovering/Resolving]

NARRATIVE: CASE EVENT DATE: 20140911
